FAERS Safety Report 22029444 (Version 1)
Quarter: 2023Q1

REPORT INFORMATION
  Report Type: Spontaneous
  Country: CN (occurrence: CN)
  Receive Date: 20230223
  Receipt Date: 20230223
  Transmission Date: 20230417
  Serious: Yes (Other)
  Sender: FDA-Public Use
  Company Number: CN-ELI_LILLY_AND_COMPANY-CN202302007390

PATIENT
  Age: 74 Year
  Sex: Male
  Weight: 60 kg

DRUGS (3)
  1. HUMALOG MIX75/25 [Suspect]
     Active Substance: INSULIN LISPRO
     Indication: Diabetes mellitus
     Dosage: 28 U, EACH MORNING
     Route: 058
     Dates: end: 20230209
  2. HUMALOG MIX75/25 [Suspect]
     Active Substance: INSULIN LISPRO
     Dosage: 28 U, DAILY (NIGHT)
     Route: 058
     Dates: end: 20230209
  3. GLUCOBAY [Concomitant]
     Active Substance: ACARBOSE
     Indication: Product used for unknown indication
     Dosage: 2 DOSAGE FORM, DAILY (AT NOON)

REACTIONS (5)
  - Retinal haemorrhage [Unknown]
  - Macular degeneration [Unknown]
  - Cataract [Unknown]
  - Blood glucose increased [Unknown]
  - Product dose omission issue [Not Recovered/Not Resolved]

NARRATIVE: CASE EVENT DATE: 20210101
